FAERS Safety Report 4997498-7 (Version None)
Quarter: 2006Q2

REPORT INFORMATION
  Report Type: 
  Country: None (occurrence: None)
  Receive Date: 20060509
  Receipt Date: 20060215
  Transmission Date: 20061013
  Serious: Yes (Hospitalization)
  Sender: FDA-Public Use
  Company Number: US-MERCK-0602USA04450

PATIENT
  Age: 68 Year
  Sex: Male
  Weight: 95 kg

DRUGS (14)
  1. VIOXX [Suspect]
     Indication: PAIN
     Route: 048
     Dates: start: 20021028, end: 20041008
  2. VIOXX [Suspect]
     Indication: SHOULDER PAIN
     Route: 048
     Dates: start: 20021028, end: 20041008
  3. ASPIRIN [Concomitant]
     Route: 048
  4. DIPHENHYDRAMINE HYDROCHLORIDE [Concomitant]
     Route: 048
  5. LISINOPRIL [Concomitant]
     Route: 048
  6. AVANDIA [Concomitant]
     Route: 048
  7. BECONASE [Concomitant]
     Route: 055
  8. VITAMIN E [Concomitant]
     Route: 048
  9. METFORMIN [Concomitant]
     Route: 048
  10. GLIPIZIDE [Concomitant]
     Route: 065
  11. VITAMINS (UNSPECIFIED) [Concomitant]
     Route: 065
  12. HYDROCHLOROTHIAZIDE [Concomitant]
     Route: 048
  13. ZOCOR [Concomitant]
     Route: 048
  14. DILTIAZEM HYDROCHLORIDE [Concomitant]
     Route: 048

REACTIONS (11)
  - BUNDLE BRANCH BLOCK RIGHT [None]
  - CEREBROVASCULAR ACCIDENT [None]
  - CLAUSTROPHOBIA [None]
  - COUGH [None]
  - HEMIPLEGIA [None]
  - INTERSTITIAL LUNG DISEASE [None]
  - LUNG INFILTRATION [None]
  - NASAL CONGESTION [None]
  - OCCULT BLOOD POSITIVE [None]
  - PHARYNGOLARYNGEAL PAIN [None]
  - STOMACH DISCOMFORT [None]
